FAERS Safety Report 10292118 (Version 2)
Quarter: 2014Q3

REPORT INFORMATION
  Report Type: Spontaneous
  Country: US (occurrence: US)
  Receive Date: 20140710
  Receipt Date: 20140711
  Transmission Date: 20150326
  Serious: Yes (Other)
  Sender: FDA-Public Use
  Company Number: US-JNJFOC-20140703487

PATIENT
  Age: 5 Decade
  Sex: Male

DRUGS (3)
  1. TRUVADA [Suspect]
     Active Substance: EMTRICITABINE\TENOFOVIR DISOPROXIL FUMARATE
     Indication: HIV INFECTION
     Dosage: STARTED APPROXIMATELY 2 YEARS AGO
     Route: 065
     Dates: start: 2012
  2. ISENTRESS [Suspect]
     Active Substance: RALTEGRAVIR POTASSIUM
     Indication: HIV INFECTION
     Dosage: STARTED APPROXIMATELY 2 YEARS AGO
     Route: 065
     Dates: start: 2012
  3. INTELENCE [Suspect]
     Active Substance: ETRAVIRINE
     Indication: HIV INFECTION
     Dosage: STARTED APPROXIMATELY 2 YEARS AGO
     Route: 048
     Dates: start: 2012

REACTIONS (2)
  - Skin disorder [Unknown]
  - Alopecia [Unknown]
